FAERS Safety Report 11752068 (Version 2)
Quarter: 2015Q4

REPORT INFORMATION
  Report Type: Report from Study
  Country: US (occurrence: US)
  Receive Date: 20151118
  Receipt Date: 20151125
  Transmission Date: 20160304
  Serious: Yes (Hospitalization)
  Sender: FDA-Public Use
  Company Number: US-KADMON PHARMACEUTICALS, LLC-KAD201511-003974

PATIENT
  Sex: Male
  Weight: 54.43 kg

DRUGS (9)
  1. RIBAVIRIN 200 MG TABLETS [Suspect]
     Active Substance: RIBAVIRIN
     Indication: HEPATITIS C
     Dosage: TAKES 4 HOURS BEFORE DIALYSIS; TUESDAY, THURSDAY, SATURDAY
     Route: 048
     Dates: start: 201507, end: 20151102
  2. VIEKIRA PAK [Suspect]
     Active Substance: DASABUVIR\OMBITASVIR\PARITAPREVIR\RITONAVIR
     Dosage: 3 TABLETS IN AM AND 1 TABLET IN PM
     Route: 048
     Dates: start: 20151108
  3. CARVEDILOL. [Concomitant]
     Active Substance: CARVEDILOL
  4. VIEKIRA PAK [Suspect]
     Active Substance: DASABUVIR\OMBITASVIR\PARITAPREVIR\RITONAVIR
     Indication: HEPATITIS C
     Dosage: 3 TABLETS IN AM AND 1 TABLET IN PM
     Route: 048
     Dates: start: 20150713, end: 20151102
  5. PREDNISONE. [Concomitant]
     Active Substance: PREDNISONE
  6. HYDROCHLOROTHIAZIDE. [Concomitant]
     Active Substance: HYDROCHLOROTHIAZIDE
  7. TRAMADOL. [Concomitant]
     Active Substance: TRAMADOL
     Indication: BACK PAIN
     Dates: start: 2009
  8. PRILOSEC [Concomitant]
     Active Substance: OMEPRAZOLE MAGNESIUM
  9. ASPIRIN. [Concomitant]
     Active Substance: ASPIRIN

REACTIONS (4)
  - Sensory disturbance [Unknown]
  - Loss of consciousness [Unknown]
  - Heart rate increased [Unknown]
  - Paresis [Unknown]

NARRATIVE: CASE EVENT DATE: 2015
